FAERS Safety Report 21928028 (Version 2)
Quarter: 2023Q1

REPORT INFORMATION
  Report Type: Spontaneous
  Country: CN (occurrence: CN)
  Receive Date: 20230130
  Receipt Date: 20230201
  Transmission Date: 20230418
  Serious: Yes (Other)
  Sender: FDA-Public Use
  Company Number: CN-PFIZER INC-PV202300017361

PATIENT
  Age: 7 Year
  Sex: Male
  Weight: 27 kg

DRUGS (3)
  1. CYTARABINE [Suspect]
     Active Substance: CYTARABINE
     Indication: Acute lymphocytic leukaemia
     Dosage: 0.07 G, 1X/DAY
     Route: 058
     Dates: start: 20230107, end: 20230119
  2. AZATHIOPRINE [Suspect]
     Active Substance: AZATHIOPRINE
     Indication: Acute lymphocytic leukaemia
     Dosage: 50 MG, 1X/DAY
     Route: 048
     Dates: start: 20230105, end: 20230119
  3. SODIUM CHLORIDE [Concomitant]
     Active Substance: SODIUM CHLORIDE
     Indication: Vehicle solution use
     Dosage: 1 ML, 1X/DAY
     Route: 058
     Dates: start: 20230107, end: 20230119

REACTIONS (3)
  - Haemoglobin decreased [Recovering/Resolving]
  - Blood fibrinogen decreased [Recovering/Resolving]
  - White blood cell count decreased [Recovering/Resolving]

NARRATIVE: CASE EVENT DATE: 20230119
